FAERS Safety Report 9182171 (Version 1)
Quarter: 2013Q1

REPORT INFORMATION
  Report Type: Spontaneous
  Country: US (occurrence: US)
  Receive Date: 20130322
  Receipt Date: 20130322
  Transmission Date: 20140127
  Serious: No
  Sender: FDA-Public Use
  Company Number: US-B.I. PHARMACEUTICALS,INC./RIDGEFIELD-2010-BP-07592BP

PATIENT
  Age: 81 Year
  Sex: Male

DRUGS (3)
  1. DULCOLAX TABLETS [Suspect]
     Indication: CONSTIPATION
     Dosage: 5 MG
     Route: 048
     Dates: start: 201007
  2. DULCOLAX TABLETS [Suspect]
     Dosage: 10 MG
     Route: 048
  3. DULCOLAX STOOL SOFTENER [Suspect]

REACTIONS (3)
  - Drug effect decreased [Unknown]
  - Constipation [Recovered/Resolved]
  - Diarrhoea [Recovered/Resolved]
